FAERS Safety Report 16511748 (Version 2)
Quarter: 2019Q3

REPORT INFORMATION
  Report Type: Spontaneous
  Country: DE (occurrence: DE)
  Receive Date: 20190702
  Receipt Date: 20190909
  Transmission Date: 20191004
  Serious: Yes (Congenital Anomaly, Other)
  Sender: FDA-Public Use
  Company Number: PHHY2019DE143394

PATIENT
  Sex: Female
  Weight: 2.95 kg

DRUGS (15)
  1. LAMOTRIGINE. [Suspect]
     Active Substance: LAMOTRIGINE
     Dosage: MATERNAL DOSE: 250 MG, QD (TOTAL DAILY DOSE) (GESTATIONAL WEEK 10-12)
     Route: 064
  2. VIMPAT [Suspect]
     Active Substance: LACOSAMIDE
     Dosage: MATERNAL DOSE:100 MG, QD (GESTATIONAL WEEK 13-14)
     Route: 064
  3. VIMPAT [Suspect]
     Active Substance: LACOSAMIDE
     Dosage: MATERNAL DOSE: 50 MG, UNK ((GESTATIONAL WEEK 14-15)
     Route: 064
  4. LAMOTRIGINE. [Suspect]
     Active Substance: LAMOTRIGINE
     Indication: FOETAL EXPOSURE DURING PREGNANCY
     Dosage: MATERNAL DOSE: UNK
     Route: 064
  5. VIMPAT [Suspect]
     Active Substance: LACOSAMIDE
     Dosage: MATERNAL DOSE: 200 MG, QD (GESTATIONAL WEEK 11-12)
     Route: 064
  6. LAMOTRIGINE. [Suspect]
     Active Substance: LAMOTRIGINE
     Dosage: MATERNAL DOSE:225 MG, QD (TOTAL DAILY DOSE) (GESTATIONAL WEEK 10-11)
     Route: 064
  7. LAMOTRIGINE. [Suspect]
     Active Substance: LAMOTRIGINE
     Dosage: MATERNAL DOSE: 275 MG, QD (TOTAL DAILY DOSE) (GESTATIONAL WEEK 12-13)
     Route: 064
     Dates: start: 2011, end: 2011
  8. LAMOTRIGINE. [Suspect]
     Active Substance: LAMOTRIGINE
     Dosage: MATERNAL DOSE:300 MG, QD (TOTAL DAILY DOSE) (GESTATIONAL WEEK 13-15)
     Route: 064
  9. VIMPAT [Suspect]
     Active Substance: LACOSAMIDE
     Dosage: MATERNAL DOSE:250 MG, QD
     Route: 064
  10. LAMOTRIGINE. [Suspect]
     Active Substance: LAMOTRIGINE
     Dosage: MATERNAL DOSE:300 MG, QD (TOTAL DAILY DOSE)
     Route: 064
  11. VIMPAT [Suspect]
     Active Substance: LACOSAMIDE
     Dosage: MATERNAL DOSE:250 MG, QD (GESTATIONAL WEEK 10-11)
     Route: 064
  12. VIMPAT [Suspect]
     Active Substance: LACOSAMIDE
     Dosage: MATERNAL DOSE: 150 MG, QD (GESTATIONAL WEEK 12-13)
     Route: 064
  13. ZEBINIX [Concomitant]
     Active Substance: ESLICARBAZEPINE ACETATE
     Indication: FOETAL EXPOSURE DURING PREGNANCY
     Dosage: MATERNAL DOSE: 200 MG, QD (GESTATIONAL WEEK 0-4.5)
     Route: 064
     Dates: start: 201103, end: 20110323
  14. VIMPAT [Suspect]
     Active Substance: LACOSAMIDE
     Indication: FOETAL EXPOSURE DURING PREGNANCY
     Dosage: MATERNAL DOSE: UNK
     Route: 064
  15. FOLIO FORTE [Concomitant]
     Active Substance: FOLIC ACID\VITAMINS
     Indication: FOETAL EXPOSURE DURING PREGNANCY
     Dosage: MATERNAL DOSE:0.8 MG, UNK (GESTATIONAL WEEK 8.3 TO 41)
     Route: 064
     Dates: start: 20110418, end: 20111202

REACTIONS (4)
  - Atrial septal defect [Recovered/Resolved]
  - Directional Doppler flow tests abnormal [Recovered/Resolved]
  - Small for dates baby [Unknown]
  - Maternal exposure during pregnancy [Recovered/Resolved]

NARRATIVE: CASE EVENT DATE: 201103
